FAERS Safety Report 15159267 (Version 1)
Quarter: 2018Q3

REPORT INFORMATION
  Report Type: Spontaneous
  Country: ZA (occurrence: ZA)
  Receive Date: 20180718
  Receipt Date: 20180718
  Transmission Date: 20181010
  Serious: Yes (Hospitalization, Other)
  Sender: FDA-Public Use
  Company Number: PHHY2018ZA037432

PATIENT
  Age: 17 Month
  Sex: Male

DRUGS (15)
  1. ATROPINE. [Suspect]
     Active Substance: ATROPINE
     Dosage: BOLUS DOSES OF 0.2 MG, 0.2 MG, 0.2 MG AND 0.3 MG AT 5?10MIN INTERVAL
     Route: 042
  2. CEFTRIAXONE. [Concomitant]
     Active Substance: CEFTRIAXONE
     Indication: SEPSIS
     Dosage: 1.2 G, UNK
     Route: 042
  3. SUCCINYLCHOLINE CHLORIDE. [Suspect]
     Active Substance: SUCCINYLCHOLINE CHLORIDE
     Indication: PRODUCT USED FOR UNKNOWN INDICATION
     Dosage: 20 MG, UNK, 1.7 MG/KG
     Route: 042
  4. ATROPINE. [Suspect]
     Active Substance: ATROPINE
     Dosage: 0.4 MG, UNK
     Route: 040
  5. ATROPINE. [Suspect]
     Active Substance: ATROPINE
     Dosage: 0.02 MG/KG, QH
     Route: 041
  6. ATROPINE. [Suspect]
     Active Substance: ATROPINE
     Dosage: 0.004 MG/KG, QH
     Route: 041
  7. ATROPINE. [Suspect]
     Active Substance: ATROPINE
     Dosage: 0.004 MG/KG, QH
     Route: 041
  8. ATROPINE. [Suspect]
     Active Substance: ATROPINE
     Dosage: 0.2 MG, UNK
     Route: 040
  9. ATROPINE. [Suspect]
     Active Substance: ATROPINE
     Dosage: 0.017 MG/KG, QH
     Route: 041
  10. ATROPINE. [Suspect]
     Active Substance: ATROPINE
     Dosage: 0.017 MG/KG, QH
     Route: 041
  11. ACYCLOVIR. [Concomitant]
     Active Substance: ACYCLOVIR
     Indication: SEPSIS
     Dosage: 240 MG, UNK
     Route: 065
  12. ATROPINE. [Suspect]
     Active Substance: ATROPINE
     Dosage: 0.017 MG/KG, QH
     Route: 041
  13. MIDAZOLAM [Concomitant]
     Active Substance: MIDAZOLAM HYDROCHLORIDE
     Indication: PRODUCT USED FOR UNKNOWN INDICATION
     Dosage: 0.2 MG, UNK, 0.02 MG/KG
     Route: 042
  14. CEFOTAXIME [Concomitant]
     Active Substance: CEFOTAXIME SODIUM
     Indication: PRODUCT USED FOR UNKNOWN INDICATION
     Dosage: UNK
     Route: 065
  15. ATROPINE. [Suspect]
     Active Substance: ATROPINE
     Indication: CHEMICAL POISONING
     Dosage: 0.01 MG/KG, UNK
     Route: 042

REACTIONS (2)
  - Paralysis [Unknown]
  - Apnoea [Unknown]
